FAERS Safety Report 7528083-0 (Version None)
Quarter: 2011Q2

REPORT INFORMATION
  Report Type: 
  Country: None (occurrence: None)
  Receive Date: 20110607
  Receipt Date: 20110527
  Transmission Date: 20111010
  Serious: No
  Sender: FDA-Public Use
  Company Number: US-ELI_LILLY_AND_COMPANY-US201105008836

PATIENT
  Sex: Male

DRUGS (2)
  1. LIPITOR [Concomitant]
  2. CIALIS [Suspect]
     Indication: ERECTILE DYSFUNCTION
     Dosage: 10 MG, PRN
     Dates: start: 20110513, end: 20110515

REACTIONS (2)
  - VISION BLURRED [None]
  - HEADACHE [None]
